FAERS Safety Report 5367823-6 (Version None)
Quarter: 2007Q2

REPORT INFORMATION
  Report Type: 
  Country: None (occurrence: None)
  Receive Date: 20070622
  Receipt Date: 20070525
  Transmission Date: 20071010
  Serious: Yes (Hospitalization)
  Sender: FDA-Public Use
  Company Number: US-ELI_LILLY_AND_COMPANY-US200706004449

PATIENT
  Age: 23 Year
  Sex: Female
  Weight: 68.934 kg

DRUGS (4)
  1. LISPRO [Suspect]
     Indication: DIABETES MELLITUS
     Dosage: 36 IU, 3/D
     Route: 058
     Dates: start: 19990401
  2. *INSULIN GLARGINE [Suspect]
     Indication: DIABETES MELLITUS
     Dosage: 40 IU, DAILY (1/D)
     Dates: start: 20000101
  3. PROZAC [Concomitant]
     Indication: DEPRESSION
     Dates: start: 20040601, end: 20060515
  4. LEVAQUIN [Concomitant]
     Indication: CYSTITIS
     Dates: start: 20070523, end: 20070525

REACTIONS (1)
  - DIABETIC KETOACIDOSIS [None]
